FAERS Safety Report 24005795 (Version 6)
Quarter: 2025Q2

REPORT INFORMATION
  Report Type: Spontaneous
  Country: US (occurrence: US)
  Receive Date: 20240624
  Receipt Date: 20250529
  Transmission Date: 20250716
  Serious: Yes (Hospitalization, Other)
  Sender: SANOFI AVENTIS
  Company Number: US-SA-SAC20240614001229

PATIENT
  Age: 50 Year
  Sex: Female

DRUGS (23)
  1. DUPIXENT [Suspect]
     Active Substance: DUPILUMAB
     Indication: Asthma
     Route: 058
     Dates: start: 20240509, end: 20240509
  2. DUPIXENT [Suspect]
     Active Substance: DUPILUMAB
     Indication: Chronic obstructive pulmonary disease
     Dosage: 300 MG, QOW
     Route: 058
     Dates: start: 202405
  3. OHTUVAYRE [Suspect]
     Active Substance: ENSIFENTRINE
     Indication: Chronic obstructive pulmonary disease
     Dosage: UNK UNK, BID
     Dates: start: 202410
  4. OXYGEN [Concomitant]
     Active Substance: OXYGEN
  5. PULMICORT TURBUHALER [Concomitant]
     Active Substance: BUDESONIDE
     Dosage: 2 ML, Q12H; TAKE 2 ML (0.5 MG TOTAL) BY NEBULIZATION EVERY 12 HOURS. RINSE MOUTH WITH WATER AFTER US
     Dates: start: 20240805, end: 20241113
  6. PERFOROMIST [Concomitant]
     Active Substance: FORMOTEROL FUMARATE DIHYDRATE
     Dosage: 2 ML, BID
     Dates: start: 20240805, end: 20241210
  7. YUPELRI [Concomitant]
     Active Substance: REVEFENACIN
  8. ZITHROMAX [Concomitant]
     Active Substance: AZITHROMYCIN DIHYDRATE
     Dates: start: 20240805
  9. ALBUTEROL SULFATE [Concomitant]
     Active Substance: ALBUTEROL SULFATE
     Indication: Wheezing
     Dosage: 3 ML, Q4H AS NEEDED
     Dates: start: 20240805
  10. ALBUTEROL SULFATE [Concomitant]
     Active Substance: ALBUTEROL SULFATE
     Indication: Dyspnoea
  11. FLEXERIL [Concomitant]
     Active Substance: CYCLOBENZAPRINE HYDROCHLORIDE
     Dates: start: 20220110
  12. VOLTAREN [Concomitant]
     Active Substance: DICLOFENAC SODIUM
     Dates: start: 20220701
  13. PEPCID [Concomitant]
     Active Substance: FAMOTIDINE
     Dosage: 1 DF, QD
  14. FLONASE [Concomitant]
     Active Substance: FLUTICASONE PROPIONATE
     Dates: start: 20240910
  15. LINZESS [Concomitant]
     Active Substance: LINACLOTIDE
     Dates: start: 20230213
  16. LORATADINE [Concomitant]
     Active Substance: LORATADINE
     Dosage: 10 MG, QD
     Dates: start: 20160217
  17. HYZAAR [Concomitant]
     Active Substance: HYDROCHLOROTHIAZIDE\LOSARTAN POTASSIUM
     Dates: start: 20220110
  18. SINGULAIR [Concomitant]
     Active Substance: MONTELUKAST SODIUM
     Dosage: 1 DF, QD; TAKE 1 TABLET (10 MG TOTAL) BY MOUTH EVERY EVENING
     Route: 048
  19. PRILOSEC [Concomitant]
     Active Substance: OMEPRAZOLE MAGNESIUM
     Dates: start: 20200811
  20. ZOFRAN [Concomitant]
     Active Substance: ONDANSETRON HYDROCHLORIDE
     Dates: start: 20211001
  21. PHENERGAN [Concomitant]
     Active Substance: PROMETHAZINE HYDROCHLORIDE
     Dosage: 1 DF, Q6H; 4 TIMES A DAY AS NEEDED
     Route: 048
     Dates: start: 20200126
  22. PROMETHAZINE [Concomitant]
     Active Substance: PROMETHAZINE HYDROCHLORIDE
     Dosage: 5 ML, Q6H; TAKE 5 ML BY MOUTH 4 TIMES A DAY AS NEEDED
     Route: 048
     Dates: start: 20210816
  23. REVEFENACIN [Concomitant]
     Active Substance: REVEFENACIN
     Dates: start: 20240805, end: 20241210

REACTIONS (22)
  - Respiratory failure [Recovering/Resolving]
  - Pneumonia [Recovering/Resolving]
  - Respiratory syncytial virus infection [Unknown]
  - Chronic obstructive pulmonary disease [Unknown]
  - Productive cough [Recovered/Resolved]
  - Condition aggravated [Recovered/Resolved]
  - Loss of personal independence in daily activities [Unknown]
  - Obstructive airways disorder [Unknown]
  - Lung diffusion disorder [Unknown]
  - Breath sounds abnormal [Unknown]
  - Wheezing [Unknown]
  - Dyspnoea [Unknown]
  - Vasodilatation [Unknown]
  - Vein rupture [Unknown]
  - Contusion [Unknown]
  - Prolonged expiration [Unknown]
  - Granulocyte count increased [Unknown]
  - Pain in extremity [Unknown]
  - Eosinophil count increased [Unknown]
  - Therapeutic response decreased [Unknown]
  - Exposure via skin contact [Unknown]
  - Accidental exposure to product [Unknown]

NARRATIVE: CASE EVENT DATE: 20240101
